FAERS Safety Report 19251913 (Version 1)
Quarter: 2021Q2

REPORT INFORMATION
  Report Type: Spontaneous
  Country: US (occurrence: US)
  Receive Date: 20210513
  Receipt Date: 20210513
  Transmission Date: 20210717
  Serious: No
  Sender: FDA-Public Use
  Company Number: US-GLAXOSMITHKLINE-US2021100405

PATIENT
  Age: 79 Year
  Sex: Female

DRUGS (1)
  1. FLONASE ALLERGY RELIEF [Suspect]
     Active Substance: FLUTICASONE PROPIONATE
     Indication: PRODUCT USED FOR UNKNOWN INDICATION
     Dosage: SPRAY 2 SPRAYS IN EACH, 50MCG PER SPRAY 2 SPRAYS IN EACH NOSTRIL
     Dates: start: 20210505

REACTIONS (5)
  - Fall [Unknown]
  - Head injury [Unknown]
  - Middle ear effusion [Unknown]
  - Somnolence [Recovering/Resolving]
  - Excessive cerumen production [Unknown]

NARRATIVE: CASE EVENT DATE: 20210506
